FAERS Safety Report 21294826 (Version 2)
Quarter: 2022Q4

REPORT INFORMATION
  Report Type: Report from Study
  Country: AU (occurrence: AU)
  Receive Date: 20220905
  Receipt Date: 20221017
  Transmission Date: 20230112
  Serious: Yes (Hospitalization)
  Sender: FDA-Public Use
  Company Number: AU-JNJFOC-20220855010

PATIENT
  Age: 57 Year
  Sex: Female
  Weight: 80 kg

DRUGS (2)
  1. SPRAVATO [Suspect]
     Active Substance: ESKETAMINE
     Indication: Depression
     Dates: start: 20220810, end: 20220819
  2. SPRAVATO [Suspect]
     Active Substance: ESKETAMINE
     Dates: start: 2022, end: 20221013

REACTIONS (4)
  - COVID-19 [Not Recovered/Not Resolved]
  - Back pain [Recovered/Resolved]
  - Chromaturia [Recovered/Resolved]
  - Dysuria [Recovered/Resolved]

NARRATIVE: CASE EVENT DATE: 20220810
